FAERS Safety Report 6630793-4 (Version None)
Quarter: 2010Q1

REPORT INFORMATION
  Report Type: 
  Country: None (occurrence: None)
  Receive Date: 20100311
  Receipt Date: 20100308
  Transmission Date: 20100710
  Serious: Yes (Death, Hospitalization)
  Sender: FDA-Public Use
  Company Number: GB-ROXANE LABORATORIES, INC.-2010-RO-00241RO

PATIENT
  Age: 40 Year
  Sex: Female

DRUGS (3)
  1. LITHIUM CARBONATE [Suspect]
     Indication: DEPRESSION
  2. AMISULPIRIDE [Suspect]
     Indication: DEPRESSION
  3. CLOMIPRAMINE HCL [Suspect]
     Indication: DEPRESSION

REACTIONS (5)
  - CEREBRAL HAEMORRHAGE [None]
  - DRUG RESISTANCE [None]
  - NEUROLEPTIC MALIGNANT SYNDROME [None]
  - RENAL FAILURE ACUTE [None]
  - RHABDOMYOLYSIS [None]
